FAERS Safety Report 9098330 (Version 2)
Quarter: 2013Q2

REPORT INFORMATION
  Report Type: Not Available
  Country: FR (occurrence: FR)
  Receive Date: 20130213
  Receipt Date: 20130412
  Transmission Date: 20140414
  Serious: Yes (Other)
  Sender: FDA-Public Use
  Company Number: FR-NAPPMUNDI-GBR-2013-0013145

PATIENT
  Age: 54 Year
  Sex: Male

DRUGS (2)
  1. OXYCONTIN LP, COMPRIME PELLICULE A LIBERATION PROLONGEE [Suspect]
     Indication: PRODUCT USED FOR UNKNOWN INDICATION
     Dosage: UNK
     Route: 048
     Dates: start: 20121118, end: 20121125
  2. OXYNORM, GELULE [Suspect]
     Indication: PRODUCT USED FOR UNKNOWN INDICATION
     Dosage: UNK
     Route: 048
     Dates: start: 20121118, end: 20121125

REACTIONS (3)
  - Weight decreased [Unknown]
  - Paraesthesia oral [Recovered/Resolved]
  - Lip oedema [Recovered/Resolved]
